FAERS Safety Report 22322265 (Version 3)
Quarter: 2023Q2

REPORT INFORMATION
  Report Type: Spontaneous
  Country: CH (occurrence: CH)
  Receive Date: 20230516
  Receipt Date: 20230531
  Transmission Date: 20230722
  Serious: Yes (Life-Threatening, Hospitalization, Other)
  Sender: FDA-Public Use
  Company Number: CH-MACLEODS PHARMACEUTICALS US LTD-MAC2023041298

PATIENT

DRUGS (5)
  1. VENLAFAXINE [Suspect]
     Active Substance: VENLAFAXINE HYDROCHLORIDE
     Indication: Depression
     Dosage: 24 GRAM, SINGLE (BOTH IMMEDIATE AND EXTENDED-RELEASE PREPARATIONS)
     Route: 065
  2. VENLAFAXINE [Suspect]
     Active Substance: VENLAFAXINE HYDROCHLORIDE
     Indication: Suicidal ideation
     Dosage: 150 MILLIGRAM, QD, TABLET
     Route: 048
  3. OXYCODONE [Concomitant]
     Active Substance: OXYCODONE
     Indication: Product used for unknown indication
     Dosage: UNK
     Route: 065
  4. ZOLMITRIPTAN [Concomitant]
     Active Substance: ZOLMITRIPTAN
     Indication: Product used for unknown indication
     Dosage: UNK
     Route: 065
  5. CAFFEINE\MECLIZINE MONOHYDROCHLORIDE\PYRIDOXINE HYDROCHLORIDE [Concomitant]
     Active Substance: CAFFEINE\MECLIZINE MONOHYDROCHLORIDE\PYRIDOXINE HYDROCHLORIDE
     Indication: Product used for unknown indication
     Dosage: UNK
     Route: 065

REACTIONS (19)
  - Acute kidney injury [Recovered/Resolved]
  - Acute hepatic failure [Recovered/Resolved]
  - Cardiac arrest [Recovered/Resolved]
  - Sinus tachycardia [Recovered/Resolved]
  - Metabolic acidosis [Recovered/Resolved]
  - Toxicity to various agents [Recovered/Resolved]
  - Disseminated intravascular coagulation [Recovered/Resolved]
  - Lactic acidosis [Recovered/Resolved]
  - Electrocardiogram QT prolonged [Recovered/Resolved]
  - Hypotension [Recovered/Resolved]
  - Serotonin syndrome [Recovered/Resolved]
  - Gastric haemorrhage [Recovered/Resolved]
  - Cardiogenic shock [Recovered/Resolved]
  - Circulatory collapse [Recovered/Resolved]
  - Drug level increased [Recovered/Resolved]
  - Pleural effusion [Recovered/Resolved]
  - Stress cardiomyopathy [Recovered/Resolved]
  - Status epilepticus [Recovered/Resolved]
  - Overdose [Recovered/Resolved]
